FAERS Safety Report 4512026-8 (Version None)
Quarter: 2004Q4

REPORT INFORMATION
  Report Type: 
  Country: None (occurrence: None)
  Receive Date: 20041123
  Receipt Date: 20041110
  Transmission Date: 20050328
  Serious: Yes (Death)
  Sender: FDA-Public Use
  Company Number: 04H-163-0272051-00

PATIENT
  Age: 65 Year
  Sex: Male
  Weight: 120.5 kg

DRUGS (18)
  1. LIDOCAINE HCL INJ [Suspect]
     Indication: PAIN
     Dosage: SEE IMAGE
     Dates: start: 20020814, end: 20020814
  2. TRIAMCINOLONE ACETONIDE S [Suspect]
     Indication: PAIN
     Dosage: SEE IMAGE
     Dates: start: 20020814, end: 20020814
  3. TRIAMCINOLONE ACETONIDE S [Suspect]
     Indication: PAIN
     Dosage: SEE IMAGE
     Dates: start: 20020814, end: 20020814
  4. ROPIVACAINE HYDROCHLORIDE [Suspect]
     Indication: PAIN
     Dosage: SEE IMAGE
     Dates: start: 20020814, end: 20020814
  5. ROPIVACAINE HYDROCHLORIDE [Suspect]
     Indication: PAIN
     Dosage: SEE IMAGE
     Dates: start: 20020814, end: 20020814
  6. TRAZODONE HCL [Concomitant]
  7. CELECOXIB [Concomitant]
  8. NEURONTIN [Concomitant]
  9. HYDROMORPHONE HYDROCHLORIDE [Concomitant]
  10. DUCULOX [Concomitant]
  11. CEFOXITIN SODIUM [Concomitant]
  12. CLINDAMYCIN HYDROCHLOLRIDE [Concomitant]
  13. ATICAN [Concomitant]
  14. MORPHINE [Concomitant]
  15. ATROPEN [Concomitant]
  16. ETOMIDATE [Concomitant]
  17. ZEMMOR [Concomitant]
  18. FENT [Concomitant]

REACTIONS (15)
  - ACUTE RESPIRATORY FAILURE [None]
  - ANEURYSM [None]
  - BACK PAIN [None]
  - GAS GANGRENE [None]
  - GENERAL PHYSICAL HEALTH DETERIORATION [None]
  - HAEMODYNAMIC INSTABILITY [None]
  - HYPOTENSION [None]
  - LIVEDO RETICULARIS [None]
  - NECROSIS [None]
  - PNEUMOMEDIASTINUM [None]
  - PNEUMOPERICARDIUM [None]
  - POST PROCEDURAL COMPLICATION [None]
  - RENAL FAILURE ACUTE [None]
  - SEPTIC SHOCK [None]
  - TACHYCARDIA [None]
